FAERS Safety Report 14772457 (Version 3)
Quarter: 2018Q4

REPORT INFORMATION
  Report Type: Report from Study
  Country: PT (occurrence: PT)
  Receive Date: 20180418
  Receipt Date: 20181026
  Transmission Date: 20190204
  Serious: Yes (Hospitalization)
  Sender: FDA-Public Use
  Company Number: PT-ROCHE-2106680

PATIENT
  Age: 66 Year
  Sex: Male
  Weight: 65.5 kg

DRUGS (8)
  1. CLEMASTINE [Concomitant]
     Active Substance: CLEMASTINE
     Indication: INFUSION RELATED REACTION
     Route: 042
     Dates: start: 20180320, end: 20180320
  2. ATEZOLIZUMAB. [Suspect]
     Active Substance: ATEZOLIZUMAB
     Indication: TRANSITIONAL CELL CARCINOMA
     Dosage: DATE OF MOST RECENT DOSE OF MONOTHERAPY ATEZOLIZUMAB PRIOR TO AE ONSET ON 20/MAR/2018.
     Route: 042
     Dates: start: 20171207
  3. LEVOTHYROXINE. [Concomitant]
     Active Substance: LEVOTHYROXINE
     Indication: HYPOTHYROIDISM
     Route: 048
     Dates: start: 20180303
  4. MAGNESIUM PIDOLATE [Concomitant]
     Active Substance: MAGNESIUM PIDOLATE
     Indication: HYPOMAGNESAEMIA
     Dosage: 1 AMPULE
     Route: 048
     Dates: start: 20180227
  5. CETIRIZINE [Concomitant]
     Active Substance: CETIRIZINE HYDROCHLORIDE
     Indication: INFUSION RELATED REACTION
     Route: 048
     Dates: start: 20150116
  6. PARACETAMOL [Concomitant]
     Active Substance: ACETAMINOPHEN
     Indication: INFUSION RELATED REACTION
     Route: 042
     Dates: start: 20180116
  7. XEROS DENTAID [Concomitant]
     Indication: DRY MOUTH
     Dosage: 1 PUFFS
     Route: 048
     Dates: start: 20180320
  8. AGIOLAX [Concomitant]
     Indication: CONSTIPATION
     Dosage: I UNIT, AS NEEDED
     Route: 048
     Dates: start: 20171228

REACTIONS (1)
  - Hypoglycaemia [Not Recovered/Not Resolved]

NARRATIVE: CASE EVENT DATE: 20180410
